FAERS Safety Report 6139017-8 (Version None)
Quarter: 2009Q1

REPORT INFORMATION
  Report Type: 
  Country: None (occurrence: None)
  Receive Date: 20090327
  Receipt Date: 20090316
  Transmission Date: 20090719
  Serious: No
  Sender: FDA-Public Use
  Company Number: 2009-193326-NL

PATIENT
  Age: 39 Year
  Sex: Female

DRUGS (3)
  1. ETONOGESTREL [Suspect]
     Indication: CONTRACEPTION
     Dosage: DF
     Dates: start: 20060419
  2. LAMOTRIGINE [Suspect]
     Dosage: DF
  3. PHENYTOIN [Concomitant]

REACTIONS (1)
  - CONVULSION [None]
